FAERS Safety Report 5060235-4 (Version None)
Quarter: 2006Q3

REPORT INFORMATION
  Report Type: 
  Country: None (occurrence: None)
  Receive Date: 20060720
  Receipt Date: 20060710
  Transmission Date: 20061208
  Serious: Yes (Other)
  Sender: FDA-Public Use
  Company Number: BR-2006-018872

PATIENT
  Age: 19 Year
  Sex: Female
  Weight: 55 kg

DRUGS (1)
  1. YASMIN [Suspect]
     Dosage: 1 (TAB(S), ORAL
     Route: 048
     Dates: start: 20040301, end: 20060622

REACTIONS (6)
  - FORMICATION [None]
  - MALAISE [None]
  - MOTOR DYSFUNCTION [None]
  - SPEECH DISORDER [None]
  - SYNCOPE [None]
  - TACHYCARDIA [None]
